FAERS Safety Report 6432613-X (Version None)
Quarter: 2009Q4

REPORT INFORMATION
  Report Type: 
  Country: None (occurrence: None)
  Receive Date: 20091109
  Receipt Date: 20091030
  Transmission Date: 20100525
  Serious: Yes (Other)
  Sender: FDA-Public Use
  Company Number: US-ASTRAZENECA-2009SE23772

PATIENT
  Sex: Male

DRUGS (1)
  1. CRESTOR [Suspect]
     Route: 048
     Dates: start: 20090830

REACTIONS (2)
  - MYOCARDIAL INFARCTION [None]
  - NERVOUS SYSTEM DISORDER [None]
